FAERS Safety Report 9715238 (Version 1)
Quarter: 2013Q4

REPORT INFORMATION
  Report Type: Spontaneous
  Country: GB (occurrence: GB)
  Receive Date: 20131126
  Receipt Date: 20131126
  Transmission Date: 20140711
  Serious: Yes (Life-Threatening, Other)
  Sender: FDA-Public Use
  Company Number: GB-009507513-1311GBR007640

PATIENT
  Age: 68 Year
  Sex: Male

DRUGS (5)
  1. ALENDRONATE SODIUM [Suspect]
     Indication: OSTEOPOROSIS PROPHYLAXIS
     Dosage: 70 MG, UNK
     Route: 048
  2. ASPIRIN [Concomitant]
  3. METHOTREXATE [Concomitant]
  4. PREDNISOLONE [Concomitant]
  5. FOLIC ACID [Concomitant]

REACTIONS (8)
  - Epiglottitis [Unknown]
  - Chemical burn of respiratory tract [Recovered/Resolved]
  - Choking [Unknown]
  - Epiglottis ulcer [Unknown]
  - Dysphonia [Unknown]
  - Laryngeal oedema [Unknown]
  - Laryngeal ulceration [Recovering/Resolving]
  - Foreign body [Unknown]
